FAERS Safety Report 10778945 (Version 1)
Quarter: 2015Q1

REPORT INFORMATION
  Report Type: Spontaneous
  Country: US (occurrence: US)
  Receive Date: 20150210
  Receipt Date: 20150210
  Transmission Date: 20150721
  Serious: No
  Sender: FDA-Public Use
  Company Number: US-GLAXOSMITHKLINE-A1073753A

PATIENT

DRUGS (3)
  1. TAGAMET [Suspect]
     Active Substance: CIMETIDINE
     Indication: NASOPHARYNGITIS
     Dosage: 800 MG TABLET
     Route: 048
     Dates: start: 20140504, end: 20140505
  2. UNKNOWN MEDICATION [Concomitant]
     Active Substance: UNSPECIFIED INGREDIENT
  3. SYNTHROID [Concomitant]
     Active Substance: LEVOTHYROXINE SODIUM

REACTIONS (3)
  - Pruritus generalised [Recovering/Resolving]
  - Rash macular [Recovering/Resolving]
  - Swelling face [Recovering/Resolving]

NARRATIVE: CASE EVENT DATE: 20140504
